FAERS Safety Report 25360964 (Version 1)
Quarter: 2025Q2

REPORT INFORMATION
  Report Type: Spontaneous
  Country: ES (occurrence: ES)
  Receive Date: 20250527
  Receipt Date: 20250527
  Transmission Date: 20250717
  Serious: Yes (Hospitalization)
  Sender: RANBAXY
  Company Number: ES-AEMPS-1638731

PATIENT
  Age: 84 Year
  Sex: Male

DRUGS (1)
  1. CIPROFLOXACIN [Suspect]
     Active Substance: CIPROFLOXACIN
     Indication: Urinary tract infection
     Dosage: 500 MILLIGRAM, BID, 500MG EVERY 12 HOURS
     Route: 048
     Dates: start: 20250114, end: 20250120

REACTIONS (2)
  - Nephritic syndrome [Recovering/Resolving]
  - Glomerulonephritis proliferative [Recovering/Resolving]

NARRATIVE: CASE EVENT DATE: 20250125
